FAERS Safety Report 18286361 (Version 1)
Quarter: 2020Q3

REPORT INFORMATION
  Report Type: Spontaneous
  Country: US (occurrence: US)
  Receive Date: 20200920
  Receipt Date: 20200920
  Transmission Date: 20201103
  Serious: No
  Sender: FDA-Public Use
  Company Number: US-ORCHID HEALTHCARE-2090954

PATIENT
  Sex: Male

DRUGS (1)
  1. SUMATRIPTAN. [Suspect]
     Active Substance: SUMATRIPTAN
     Indication: MIGRAINE
     Route: 048
     Dates: start: 201907

REACTIONS (2)
  - Therapeutic product effect incomplete [Unknown]
  - Product substitution issue [Unknown]

NARRATIVE: CASE EVENT DATE: 2019
